FAERS Safety Report 23146524 (Version 1)
Quarter: 2023Q4

REPORT INFORMATION
  Report Type: Spontaneous
  Country: OM (occurrence: OM)
  Receive Date: 20231105
  Receipt Date: 20231105
  Transmission Date: 20240110
  Serious: Yes (Other)
  Sender: FDA-Public Use
  Company Number: OM-EPICPHARMA-OM-2023EPCLIT01683

PATIENT
  Age: 7 Month
  Sex: Female

DRUGS (3)
  1. CARBOPLATIN [Suspect]
     Active Substance: CARBOPLATIN
     Indication: Congenital retinoblastoma
     Dosage: CUMULATIVE DOSE OF 936MG
     Route: 065
  2. VINCRISTINE [Suspect]
     Active Substance: VINCRISTINE
     Indication: Congenital retinoblastoma
     Dosage: CUMULATIVE DOSE OF 2.10MG
     Route: 065
  3. ETOPOSIDE [Suspect]
     Active Substance: ETOPOSIDE
     Indication: Congenital retinoblastoma
     Dosage: CUMULATIVE DOSE OF 504MG
     Route: 065

REACTIONS (2)
  - Chronic myeloid leukaemia [Unknown]
  - Product use in unapproved indication [Unknown]
